FAERS Safety Report 21786565 (Version 1)
Quarter: 2022Q4

REPORT INFORMATION
  Report Type: Report from Study
  Country: US (occurrence: US)
  Receive Date: 20221228
  Receipt Date: 20221228
  Transmission Date: 20230113
  Serious: No
  Sender: FDA-Public Use
  Company Number: US-ABBVIE-4204891

PATIENT
  Sex: Female

DRUGS (1)
  1. SKYRIZI [Suspect]
     Active Substance: RISANKIZUMAB-RZAA
     Indication: Psoriasis
     Dosage: FORM STRENGTH: 150, WEEK 0
     Route: 058
     Dates: start: 20221012, end: 20221012

REACTIONS (4)
  - Rhinorrhoea [Recovering/Resolving]
  - Hypersensitivity [Unknown]
  - Dry skin [Unknown]
  - Cough [Recovering/Resolving]
